FAERS Safety Report 6231354-1 (Version None)
Quarter: 2009Q2

REPORT INFORMATION
  Report Type: 
  Country: None (occurrence: None)
  Receive Date: 20090616
  Receipt Date: 20090603
  Transmission Date: 20091009
  Serious: Yes (Other)
  Sender: FDA-Public Use
  Company Number: US-ELI_LILLY_AND_COMPANY-US200904006999

PATIENT
  Age: 53 Year
  Sex: Female
  Weight: 115.65 kg

DRUGS (6)
  1. CYMBALTA [Suspect]
     Indication: NEUROPATHY PERIPHERAL
     Dosage: 1 D/F, UNK
     Route: 048
     Dates: start: 20090101
  2. EXENATIDE [Concomitant]
     Indication: DIABETES MELLITUS
     Dosage: 5 UG, 2/D
     Dates: start: 20070201
  3. EXENATIDE [Concomitant]
     Dosage: 10 UG, 2/D
     Dates: end: 20090501
  4. METFORMIN HCL [Concomitant]
     Indication: DIABETES MELLITUS
     Dosage: 1000 MG, 2/M
     Dates: start: 20070101
  5. EFFEXOR XR [Concomitant]
     Indication: DEPRESSION
     Dosage: 150 MG, UNK
     Dates: start: 20070101, end: 20090401
  6. DIURETICS [Concomitant]

REACTIONS (1)
  - PANCREATITIS [None]
